FAERS Safety Report 9635715 (Version 2)
Quarter: 2013Q4

REPORT INFORMATION
  Report Type: Spontaneous
  Country: JP (occurrence: JP)
  Receive Date: 20131021
  Receipt Date: 20131210
  Transmission Date: 20140711
  Serious: Yes (Other)
  Sender: FDA-Public Use
  Company Number: JP-VIIV HEALTHCARE LIMITED-B0932215A

PATIENT
  Sex: 0

DRUGS (7)
  1. EPIVIR [Suspect]
     Indication: HIV INFECTION
     Route: 048
  2. STOCRIN [Concomitant]
     Indication: HIV INFECTION
     Route: 048
  3. VIDEX [Concomitant]
     Indication: HIV INFECTION
     Route: 048
  4. KALETRA [Concomitant]
     Indication: HIV INFECTION
     Route: 048
  5. OLMESARTAN MEDOXOMIL [Concomitant]
     Route: 048
  6. CARVEDILOL [Concomitant]
     Route: 048
  7. NIFEDIPINE [Concomitant]
     Route: 048

REACTIONS (1)
  - Renal impairment [Unknown]
